FAERS Safety Report 4273832-0 (Version None)
Quarter: 2004Q1

REPORT INFORMATION
  Report Type: 
  Country: None (occurrence: None)
  Receive Date: 20040120
  Receipt Date: 20031017
  Transmission Date: 20041129
  Serious: Yes (Hospitalization)
  Sender: FDA-Public Use
  Company Number: PHBS2003JP11583

PATIENT
  Age: 54 Year
  Sex: Female
  Weight: 43 kg

DRUGS (1)
  1. LAMISIL [Suspect]
     Indication: NAIL TINEA
     Dosage: 125 MG/D
     Route: 048
     Dates: start: 20030909, end: 20031008

REACTIONS (6)
  - COUGH [None]
  - DYSPNOEA [None]
  - EOSINOPHIL COUNT INCREASED [None]
  - EOSINOPHILIC PNEUMONIA [None]
  - FATIGUE [None]
  - PYREXIA [None]
